FAERS Safety Report 18879235 (Version 1)
Quarter: 2021Q1

REPORT INFORMATION
  Report Type: Spontaneous
  Country: US (occurrence: US)
  Receive Date: 20210211
  Receipt Date: 20210211
  Transmission Date: 20210420
  Serious: Yes (Hospitalization)
  Sender: FDA-Public Use
  Company Number: US-FRESENIUS KABI-FK202101307

PATIENT
  Age: 55 Year
  Sex: Male
  Weight: 66.9 kg

DRUGS (3)
  1. FLUDARABINE [Suspect]
     Active Substance: FLUDARABINE PHOSPHATE
     Indication: PLASMA CELL MYELOMA
     Route: 042
     Dates: start: 20210113, end: 20210115
  2. NO DRUG NAME [Suspect]
     Active Substance: UNSPECIFIED INGREDIENT
     Indication: PLASMA CELL MYELOMA
     Route: 042
  3. CYCLOPHOSPHAMIDE. [Suspect]
     Active Substance: CYCLOPHOSPHAMIDE
     Indication: PLASMA CELL MYELOMA
     Route: 042
     Dates: start: 20210113, end: 20210115

REACTIONS (1)
  - Febrile neutropenia [Recovered/Resolved with Sequelae]

NARRATIVE: CASE EVENT DATE: 20210116
